FAERS Safety Report 5609050-0 (Version None)
Quarter: 2008Q1

REPORT INFORMATION
  Report Type: 
  Country: None (occurrence: None)
  Receive Date: 20080131
  Receipt Date: 20080125
  Transmission Date: 20080703
  Serious: Yes (Hospitalization)
  Sender: FDA-Public Use
  Company Number: HQWYE529413AUG07

PATIENT
  Age: 42 Year
  Sex: Female

DRUGS (3)
  1. PANTOPRAZOLE SODIUM [Suspect]
     Indication: HELICOBACTER GASTRITIS
     Route: 048
     Dates: start: 20070404
  2. METRONIDE [Suspect]
     Route: 048
     Dates: start: 20070404
  3. KLACID [Suspect]
     Indication: HELICOBACTER GASTRITIS
     Route: 048
     Dates: start: 20070404

REACTIONS (1)
  - MANIA [None]
